FAERS Safety Report 8694912 (Version 2)
Quarter: 2012Q4

REPORT INFORMATION
  Report Type: 
  Country: CA (occurrence: CA)
  Receive Date: 20120731
  Receipt Date: 20120925
  Transmission Date: 20130627
  Serious: Yes (Hospitalization, Other)
  Sender: FDA-Public Use
  Company Number: PHHY2012CA065366

PATIENT
  Sex: Male

DRUGS (11)
  1. CLOZARIL [Suspect]
     Indication: PSYCHOTIC DISORDER
     Route: 048
     Dates: start: 20080110
  2. CLOZARIL [Suspect]
     Dosage: 37.5 mg, daily
     Route: 048
  3. SINEMET [Concomitant]
  4. COMTAN [Concomitant]
     Dosage: 200 mg, UNK
  5. SINEMET-CR [Concomitant]
     Dosage: 200/50
  6. AMIODARONE [Concomitant]
  7. FLORINEF [Concomitant]
  8. DILTIAZEM [Concomitant]
     Dosage: 30 mg, UNK
  9. FLOMAX [Concomitant]
  10. SOFLAX [Concomitant]
  11. VITAMIN D [Concomitant]

REACTIONS (5)
  - Ilium fracture [Recovered/Resolved with Sequelae]
  - Fall [Recovered/Resolved with Sequelae]
  - Dementia [Recovered/Resolved with Sequelae]
  - Parkinson^s disease [Recovered/Resolved with Sequelae]
  - Orthostatic hypotension [Recovered/Resolved with Sequelae]
